FAERS Safety Report 5380859-4 (Version None)
Quarter: 2007Q3

REPORT INFORMATION
  Report Type: 
  Country: None (occurrence: None)
  Receive Date: 20070706
  Receipt Date: 20070628
  Transmission Date: 20080115
  Serious: Yes (Other)
  Sender: FDA-Public Use
  Company Number: US-JNJFOC-20070700120

PATIENT
  Sex: Female
  Weight: 80.29 kg

DRUGS (4)
  1. DURAGESIC-100 [Suspect]
     Indication: PAIN
     Dosage: 2 X 25 UG/HR PATCHES
     Route: 062
  2. PROPRANOLOL [Concomitant]
     Indication: HYPERTENSION
     Route: 048
  3. HYZAAR [Concomitant]
     Indication: HYPERTENSION
     Dosage: 50 MG/12MG
     Route: 048
  4. ZOCOR [Concomitant]
     Route: 048

REACTIONS (1)
  - BREAST CANCER [None]
